FAERS Safety Report 7502639-3 (Version None)
Quarter: 2011Q2

REPORT INFORMATION
  Report Type: 
  Country: None (occurrence: None)
  Receive Date: 20110525
  Receipt Date: 20110512
  Transmission Date: 20111010
  Serious: Yes (Hospitalization)
  Sender: FDA-Public Use
  Company Number: PHHY2011IL41921

PATIENT
  Age: 50 Year
  Sex: Male

DRUGS (3)
  1. CERTICAN [Suspect]
     Indication: RENAL TRANSPLANT
     Dosage: 1.25 MG, DAILY, IN TWO DIVIDED DOSE
     Route: 048
  2. MYFORTIC [Concomitant]
     Dosage: 360 MG, BID
     Route: 048
  3. PREDNISONE TAB [Concomitant]
     Dosage: 5-10MG DAILY

REACTIONS (7)
  - HYPOALBUMINAEMIA [None]
  - WOUND [None]
  - NEPHROTIC SYNDROME [None]
  - PROTEINURIA [None]
  - ERYTHEMA [None]
  - OEDEMA PERIPHERAL [None]
  - CELLULITIS [None]
